FAERS Safety Report 7677820-3 (Version None)
Quarter: 2011Q3

REPORT INFORMATION
  Report Type: 
  Country: None (occurrence: None)
  Receive Date: 20110811
  Receipt Date: 20110809
  Transmission Date: 20111222
  Serious: Yes (Other)
  Sender: FDA-Public Use
  Company Number: FR-GILEAD-2010-0030099

PATIENT
  Sex: Female
  Weight: 66 kg

DRUGS (15)
  1. SUSTIVA [Concomitant]
     Dates: end: 20091001
  2. VIREAD [Suspect]
     Dates: start: 20091119
  3. TRUVADA [Concomitant]
     Dates: start: 20100501
  4. AZT [Concomitant]
     Dates: start: 20100406, end: 20100406
  5. ZIAGEN [Concomitant]
     Dates: end: 20091001
  6. REYATAZ [Concomitant]
     Dates: start: 20091119
  7. SPASFON [Concomitant]
     Dates: start: 20100210
  8. VIREAD [Suspect]
     Indication: HIV INFECTION
     Dates: start: 20050101, end: 20091001
  9. MICARDIS HCT [Concomitant]
     Indication: HYPERTENSION
  10. ZIAGEN [Concomitant]
     Dates: start: 20091119
  11. NICARDIPINE HCL [Concomitant]
     Indication: HYPERTENSION
     Dates: start: 20100120
  12. AMOXICILLIN TRIHYDRATE [Concomitant]
     Dates: start: 20100406
  13. ISENTRESS [Concomitant]
     Dates: start: 20100501
  14. NORVIR [Concomitant]
     Dates: start: 20091119
  15. CELESTONE [Concomitant]
     Dates: start: 20100406

REACTIONS (7)
  - ALBUMINURIA [None]
  - BLOOD ALKALINE PHOSPHATASE INCREASED [None]
  - PREMATURE DELIVERY [None]
  - BLOOD UREA DECREASED [None]
  - PROTEINURIA [None]
  - SHORTENED CERVIX [None]
  - ANAEMIA [None]
